FAERS Safety Report 12931952 (Version 2)
Quarter: 2016Q4

REPORT INFORMATION
  Report Type: Spontaneous
  Country: US (occurrence: US)
  Receive Date: 20161111
  Receipt Date: 20161130
  Transmission Date: 20170207
  Serious: Yes (Other)
  Sender: FDA-Public Use
  Company Number: US-JNJFOC-20161104037

PATIENT
  Sex: Male

DRUGS (1)
  1. LISTERINE TOTAL CARE STAIN REMOVER ANTI CAVITY FRESHMINT [Suspect]
     Active Substance: SODIUM FLUORIDE
     Indication: PRODUCT USED FOR UNKNOWN INDICATION
     Route: 048

REACTIONS (1)
  - Chemical burn of gastrointestinal tract [Recovered/Resolved]
